FAERS Safety Report 11434687 (Version 2)
Quarter: 2016Q3

REPORT INFORMATION
  Report Type: Spontaneous
  Country: GB (occurrence: GB)
  Receive Date: 20150831
  Receipt Date: 20160927
  Transmission Date: 20161109
  Serious: Yes (Other)
  Sender: FDA-Public Use
  Company Number: GB-BAYER-2015-405310

PATIENT
  Sex: Female

DRUGS (1)
  1. MIRENA [Suspect]
     Active Substance: LEVONORGESTREL
     Dosage: 20 MCG/24HR, CONT
     Route: 015
     Dates: start: 201204

REACTIONS (5)
  - Autoimmune disorder [Unknown]
  - Amenorrhoea [Recovered/Resolved]
  - Menorrhagia [Recovered/Resolved]
  - Premature menopause [Unknown]
  - Infertility [Unknown]

NARRATIVE: CASE EVENT DATE: 2012
